FAERS Safety Report 25663385 (Version 1)
Quarter: 2025Q3

REPORT INFORMATION
  Report Type: Spontaneous
  Country: US (occurrence: US)
  Receive Date: 20250811
  Receipt Date: 20250811
  Transmission Date: 20251020
  Serious: No
  Sender: BIOVITRUM
  Company Number: US-BIOVITRUM-2025-US-010859

PATIENT
  Age: 76 Year
  Sex: Male

DRUGS (2)
  1. VONJO [Suspect]
     Active Substance: PACRITINIB
     Indication: Chronic lymphocytic leukaemia
     Route: 048
     Dates: start: 20250516
  2. BRUKINSA [Concomitant]
     Active Substance: ZANUBRUTINIB
     Indication: Product used for unknown indication

REACTIONS (2)
  - Localised infection [Unknown]
  - Intentional product misuse [Not Recovered/Not Resolved]

NARRATIVE: CASE EVENT DATE: 20250516
